FAERS Safety Report 11123682 (Version 6)
Quarter: 2016Q3

REPORT INFORMATION
  Report Type: Report from Study
  Country: US (occurrence: US)
  Receive Date: 20150519
  Receipt Date: 20160822
  Transmission Date: 20161109
  Serious: Yes (Hospitalization, Other)
  Sender: FDA-Public Use
  Company Number: PHHY2015US056334

PATIENT
  Age: 53 Year
  Sex: Female
  Weight: 56.7 kg

DRUGS (3)
  1. GILENYA [Suspect]
     Active Substance: FINGOLIMOD HYDROCHLORIDE
     Indication: MULTIPLE SCLEROSIS
     Dosage: 0.5 MG, QD
     Route: 048
     Dates: start: 20131107
  2. GILENYA [Suspect]
     Active Substance: FINGOLIMOD HYDROCHLORIDE
     Dosage: 0.5 MG, UNK
     Route: 048
     Dates: start: 20140912
  3. CARBAMAZEPINE. [Concomitant]
     Active Substance: CARBAMAZEPINE
     Indication: TRIGEMINAL NEURALGIA
     Dosage: 100 MG, TID
     Route: 048
     Dates: start: 201511

REACTIONS (19)
  - Speech disorder [Recovering/Resolving]
  - Foaming at mouth [Recovering/Resolving]
  - Microvascular coronary artery disease [Unknown]
  - Chest discomfort [Unknown]
  - Cerebral infarction [Unknown]
  - White blood cell count decreased [Unknown]
  - Confusional state [Recovering/Resolving]
  - Bruxism [Not Recovered/Not Resolved]
  - Generalised tonic-clonic seizure [Recovered/Resolved]
  - Carotid arteriosclerosis [Unknown]
  - Sleep apnoea syndrome [Recovered/Resolved]
  - Ataxia [Unknown]
  - Blood potassium decreased [Unknown]
  - Eosinophil count increased [Unknown]
  - Balance disorder [Unknown]
  - Mental status changes [Recovering/Resolving]
  - Cerebral atrophy [Unknown]
  - Aphasia [Unknown]
  - Plantar fasciitis [Not Recovered/Not Resolved]

NARRATIVE: CASE EVENT DATE: 20140912
